FAERS Safety Report 21561745 (Version 1)
Quarter: 2022Q4

REPORT INFORMATION
  Report Type: Spontaneous
  Country: US (occurrence: US)
  Receive Date: 20221107
  Receipt Date: 20221107
  Transmission Date: 20230113
  Serious: No
  Sender: FDA-Public Use
  Company Number: US-PFIZER INC-202201277938

PATIENT
  Age: 67 Year
  Sex: Male
  Weight: 87.09 kg

DRUGS (1)
  1. POTASSIUM CHLORIDE [Suspect]
     Active Substance: POTASSIUM CHLORIDE
     Dosage: UNK, 1X/DAY (CRYS 30; 1 A DAY)

REACTIONS (1)
  - Hypokalaemic syndrome [Unknown]
